FAERS Safety Report 19971942 (Version 1)
Quarter: 2021Q4

REPORT INFORMATION
  Report Type: Spontaneous
  Country: NL (occurrence: NL)
  Receive Date: 20211020
  Receipt Date: 20211020
  Transmission Date: 20220303
  Serious: Yes (Hospitalization)
  Sender: FDA-Public Use
  Company Number: NL-SUN PHARMACEUTICAL INDUSTRIES LTD-2021R1-314241

PATIENT
  Age: 27 Year
  Sex: Male

DRUGS (2)
  1. SOTALOL [Suspect]
     Active Substance: SOTALOL
     Indication: Atrial flutter
     Dosage: 80 MILLIGRAM, BID
     Route: 065
  2. IBUTILIDE [Suspect]
     Active Substance: IBUTILIDE
     Indication: Atrial flutter
     Dosage: UNK
     Route: 065

REACTIONS (2)
  - Disease recurrence [Unknown]
  - Electrocardiogram T wave abnormal [Recovered/Resolved]
